FAERS Safety Report 4568906-0 (Version None)
Quarter: 2005Q1

REPORT INFORMATION
  Report Type: 
  Country: None (occurrence: None)
  Receive Date: 20050203
  Receipt Date: 20050124
  Transmission Date: 20050727
  Serious: Yes (Other)
  Sender: FDA-Public Use
  Company Number: US-JNJFOC-20041105878

PATIENT
  Sex: Male
  Weight: 83.46 kg

DRUGS (9)
  1. REMICADE [Suspect]
     Dosage: 8 INFUSIONS
     Route: 042
  2. REMICADE [Suspect]
     Indication: CROHN'S DISEASE
     Dosage: 5MG/KG
     Route: 042
  3. IMURAN [Concomitant]
  4. ASACOL [Concomitant]
  5. ZANTAC [Concomitant]
  6. NORVASC [Concomitant]
  7. ATENOLOL [Concomitant]
  8. ZESTRIL [Concomitant]
  9. ASPIRIN [Concomitant]

REACTIONS (1)
  - B-CELL LYMPHOMA [None]
